FAERS Safety Report 12352695 (Version 5)
Quarter: 2016Q3

REPORT INFORMATION
  Report Type: Report from Study
  Country: US (occurrence: US)
  Receive Date: 20160510
  Receipt Date: 20160915
  Transmission Date: 20161109
  Serious: Yes (Hospitalization)
  Sender: FDA-Public Use
  Company Number: US-EISAI MEDICAL RESEARCH-EC-2016-016174

PATIENT
  Sex: Female
  Weight: 48 kg

DRUGS (19)
  1. LISINOPRIL. [Concomitant]
     Active Substance: LISINOPRIL
  2. ZOFRAN [Concomitant]
     Active Substance: ONDANSETRON HYDROCHLORIDE
  3. LASIX [Concomitant]
     Active Substance: FUROSEMIDE
  4. LEVOTHYROXINE SODIUM. [Concomitant]
     Active Substance: LEVOTHYROXINE SODIUM
  5. LENVIMA [Suspect]
     Active Substance: LENVATINIB
     Route: 048
     Dates: start: 2016, end: 201608
  6. VITAMIN D3 [Concomitant]
     Active Substance: CHOLECALCIFEROL
  7. LENVIMA [Suspect]
     Active Substance: LENVATINIB
     Route: 048
     Dates: start: 20160407, end: 201604
  8. LENVIMA [Suspect]
     Active Substance: LENVATINIB
     Route: 048
     Dates: start: 201608, end: 2016
  9. TRAMADOL HCL-ACETAMINOPHEN [Concomitant]
  10. MARINOL [Concomitant]
     Active Substance: DRONABINOL
  11. LENVIMA [Suspect]
     Active Substance: LENVATINIB
     Indication: THYROID CANCER
     Route: 048
     Dates: start: 20160405, end: 20160406
  12. NORVASC [Concomitant]
     Active Substance: AMLODIPINE BESYLATE
  13. SPIRONOLACTONE. [Concomitant]
     Active Substance: SPIRONOLACTONE
  14. XARELTO [Concomitant]
     Active Substance: RIVAROXABAN
  15. LENVIMA [Suspect]
     Active Substance: LENVATINIB
     Dosage: 10 MG ALTERNATING WITH 20 MG
     Route: 048
     Dates: start: 201604, end: 20160629
  16. METOPROLOL TARTRATE. [Concomitant]
     Active Substance: METOPROLOL TARTRATE
  17. AMIODARONE [Concomitant]
     Active Substance: AMIODARONE
  18. INDERAL [Concomitant]
     Active Substance: PROPRANOLOL HYDROCHLORIDE
  19. AMLODIPINE [Concomitant]
     Active Substance: AMLODIPINE BESYLATE

REACTIONS (18)
  - Urinary tract infection [Recovering/Resolving]
  - Dizziness [Unknown]
  - Vomiting [Unknown]
  - Dehydration [Unknown]
  - Fatigue [Unknown]
  - Constipation [Not Recovered/Not Resolved]
  - Confusional state [Unknown]
  - Arthralgia [Unknown]
  - Hallucination [Recovering/Resolving]
  - Diarrhoea [Not Recovered/Not Resolved]
  - Abdominal discomfort [Unknown]
  - Hypertension [Unknown]
  - Heart rate increased [Unknown]
  - Nausea [Recovering/Resolving]
  - Weight decreased [Unknown]
  - Delusion [Unknown]
  - Decreased appetite [Unknown]
  - Fall [Unknown]

NARRATIVE: CASE EVENT DATE: 2016
